FAERS Safety Report 5963359-X (Version None)
Quarter: 2008Q4

REPORT INFORMATION
  Report Type: 
  Country: None (occurrence: None)
  Receive Date: 20081121
  Receipt Date: 20081121
  Transmission Date: 20090506
  Serious: Yes (Other)
  Sender: FDA-Public Use
  Company Number: None

PATIENT
  Sex: Female
  Weight: 63 kg

DRUGS (1)
  1. DEFINITY [Suspect]
     Indication: CARDIAC VENTRICULAR DISORDER
     Dosage: 2CC DILUTED IN 8 CC OF SALINE
     Dates: start: 20081118, end: 20081118

REACTIONS (4)
  - CHEST PAIN [None]
  - HEADACHE [None]
  - HEART RATE ABNORMAL [None]
  - RASH ERYTHEMATOUS [None]
